FAERS Safety Report 9054268 (Version 1)
Quarter: 2013Q1

REPORT INFORMATION
  Report Type: Spontaneous
  Country: GB (occurrence: GB)
  Receive Date: 20130208
  Receipt Date: 20130208
  Transmission Date: 20140127
  Serious: Yes (Other)
  Sender: FDA-Public Use
  Company Number: GB-GLAXOSMITHKLINE-B0863384A

PATIENT
  Age: 51 Year
  Sex: Female

DRUGS (7)
  1. ELTROMBOPAG [Suspect]
     Indication: IDIOPATHIC THROMBOCYTOPENIC PURPURA
     Dosage: 50MG PER DAY
     Route: 048
     Dates: start: 20130108
  2. BENDROFLUMETHIAZIDE [Concomitant]
  3. RAMIPRIL [Concomitant]
  4. NORETHISTERONE ACETATE [Concomitant]
  5. PHENOXYMETHYLPENICILLIN [Concomitant]
  6. LEVOTHYROXINE [Concomitant]
  7. CICLOSPORIN [Concomitant]

REACTIONS (2)
  - Muscle spasms [Not Recovered/Not Resolved]
  - Platelet count increased [Not Recovered/Not Resolved]
